FAERS Safety Report 10061341 (Version 1)
Quarter: 2014Q2

REPORT INFORMATION
  Report Type: Report from Study
  Country: DE (occurrence: DE)
  Receive Date: 20140407
  Receipt Date: 20140407
  Transmission Date: 20141212
  Serious: Yes (Other)
  Sender: FDA-Public Use
  Company Number: DE-ROCHE-1378297

PATIENT
  Sex: Female
  Weight: 75 kg

DRUGS (4)
  1. LUCENTIS [Suspect]
     Indication: AGE-RELATED MACULAR DEGENERATION
     Route: 050
     Dates: start: 20140226
  2. LUCENTIS [Suspect]
     Indication: RETINAL CYST
     Route: 050
     Dates: start: 20140326
  3. LUCENTIS [Suspect]
     Indication: RETINAL DETACHMENT
  4. LUCENTIS [Suspect]
     Indication: CHOROIDAL NEOVASCULARISATION

REACTIONS (2)
  - Hypertensive crisis [Recovered/Resolved]
  - Arrhythmia [Recovered/Resolved]
